FAERS Safety Report 8316290-9 (Version None)
Quarter: 2012Q2

REPORT INFORMATION
  Report Type: 
  Country: None (occurrence: None)
  Receive Date: 20120427
  Receipt Date: 20120425
  Transmission Date: 20120825
  Serious: No
  Sender: FDA-Public Use
  Company Number: US-PFIZER INC-2012103561

PATIENT
  Sex: Male
  Weight: 65.76 kg

DRUGS (7)
  1. DIAZEPAM [Concomitant]
     Dosage: 5 MG, 2X/DAY
  2. ABILIFY [Concomitant]
     Dosage: UNK, DAILY
  3. LAMICTAL [Concomitant]
     Dosage: 250 MG, 2X/DAY
  4. CHANTIX [Suspect]
     Dosage: UNK
     Route: 048
     Dates: start: 20120401
  5. CELEXA [Concomitant]
     Dosage: UNK, DAILY
  6. CHANTIX [Suspect]
     Indication: SMOKING CESSATION THERAPY
     Dosage: 0.5 MG, DAILY
     Route: 048
     Dates: start: 20120417, end: 20120401
  7. REMERON [Concomitant]
     Dosage: UNK, 2X/DAY

REACTIONS (1)
  - NAUSEA [None]
